FAERS Safety Report 20650295 (Version 2)
Quarter: 2022Q2

REPORT INFORMATION
  Report Type: Spontaneous
  Country: FR (occurrence: FR)
  Receive Date: 20220329
  Receipt Date: 20220519
  Transmission Date: 20220720
  Serious: Yes (Death, Hospitalization)
  Sender: FDA-Public Use
  Company Number: FR-PFIZER INC-202200478059

PATIENT
  Age: 69 Year
  Sex: Male
  Weight: 66 kg

DRUGS (2)
  1. PAXLOVID [Suspect]
     Active Substance: NIRMATRELVIR\RITONAVIR
     Indication: COVID-19 treatment
     Dosage: [PF-07321332 150 MG]/[RITONAVIR 100 MG]; 2X/DAY
     Route: 048
     Dates: start: 20220226
  2. SOTROVIMAB [Concomitant]
     Active Substance: SOTROVIMAB
     Dosage: UNK
     Dates: start: 20220226

REACTIONS (10)
  - Seizure [Fatal]
  - Nervous system disorder [Fatal]
  - Pneumonitis [Fatal]
  - Hypercapnia [Fatal]
  - Acidosis [Fatal]
  - Ischaemic stroke [Fatal]
  - COVID-19 [Fatal]
  - Multiple organ dysfunction syndrome [Fatal]
  - Off label use [Unknown]
  - Drug ineffective [Unknown]

NARRATIVE: CASE EVENT DATE: 20220302
